FAERS Safety Report 11588825 (Version 1)
Quarter: 2015Q4

REPORT INFORMATION
  Report Type: Spontaneous
  Country: US (occurrence: US)
  Receive Date: 20151002
  Receipt Date: 20151002
  Transmission Date: 20160304
  Serious: No
  Sender: FDA-Public Use
  Company Number: US-BIOGENIDEC-2015BI130228

PATIENT
  Sex: Female

DRUGS (1)
  1. TECFIDERA [Suspect]
     Active Substance: DIMETHYL FUMARATE
     Indication: PRODUCT USED FOR UNKNOWN INDICATION

REACTIONS (6)
  - Peroneal nerve palsy [Not Recovered/Not Resolved]
  - Nausea [Unknown]
  - Angioedema [Unknown]
  - Abnormal loss of weight [Unknown]
  - Hypersensitivity [Unknown]
  - Adverse drug reaction [Unknown]
